FAERS Safety Report 9335504 (Version 6)
Quarter: 2017Q2

REPORT INFORMATION
  Report Type: Spontaneous
  Country: US (occurrence: US)
  Receive Date: 20130605
  Receipt Date: 20170620
  Transmission Date: 20170830
  Serious: Yes (Hospitalization)
  Sender: FDA-Public Use
  Company Number: US-PFIZER INC-2013165395

PATIENT
  Age: 74 Year
  Sex: Female
  Weight: 68 kg

DRUGS (7)
  1. AROMASIN [Suspect]
     Active Substance: EXEMESTANE
     Indication: BREAST CANCER STAGE IV
     Dosage: 25 MG, DAILY(IN THE EVENING)
     Dates: start: 199910, end: 2016
  2. METOPROLOL. [Concomitant]
     Active Substance: METOPROLOL
     Indication: BLOOD PRESSURE MEASUREMENT
     Dosage: 50 MG, 2X/DAY
  3. LASIX [Concomitant]
     Active Substance: FUROSEMIDE
     Indication: HYPERTENSION
     Dosage: UNK
     Dates: end: 201605
  4. BENADRYL [Concomitant]
     Active Substance: DIPHENHYDRAMINE HYDROCHLORIDE
     Indication: HYPERSENSITIVITY
  5. AROMASIN [Suspect]
     Active Substance: EXEMESTANE
     Dosage: 25 MG, DAILY
     Dates: start: 2001
  6. PRILOSEC [Concomitant]
     Active Substance: OMEPRAZOLE MAGNESIUM
     Indication: GASTROOESOPHAGEAL REFLUX DISEASE
     Dosage: UNK, 2X/DAY (EVERY 12 HOURS)
  7. BENADRYL [Concomitant]
     Active Substance: DIPHENHYDRAMINE HYDROCHLORIDE
     Indication: COUGH
     Dosage: 50 MG, AS NEEDED (THREE TIMES IN 24 HOURS)
     Dates: start: 2016

REACTIONS (14)
  - Irritability [Unknown]
  - Vitamin D decreased [Unknown]
  - Fatigue [Unknown]
  - Crying [Unknown]
  - Drug dose omission [Unknown]
  - Hypertension [Not Recovered/Not Resolved]
  - Musculoskeletal pain [Unknown]
  - Hyperhidrosis [Unknown]
  - Malaise [Unknown]
  - Neoplasm recurrence [Unknown]
  - Premenstrual syndrome [Unknown]
  - Blood potassium decreased [Not Recovered/Not Resolved]
  - Bone pain [Unknown]
  - Intentional product misuse [Unknown]

NARRATIVE: CASE EVENT DATE: 2016
